FAERS Safety Report 10906623 (Version 1)
Quarter: 2015Q1

REPORT INFORMATION
  Report Type: Spontaneous
  Country: CH (occurrence: CH)
  Receive Date: 20150312
  Receipt Date: 20150312
  Transmission Date: 20150721
  Serious: Yes (Other)
  Sender: FDA-Public Use
  Company Number: CH-009507513-1503CHE002242

PATIENT
  Age: 25 Year
  Sex: Female

DRUGS (7)
  1. RISPERDAL [Suspect]
     Active Substance: RISPERIDONE
     Dosage: 4 MG, QD
     Dates: start: 20141009
  2. RISPERDAL [Suspect]
     Active Substance: RISPERIDONE
     Indication: BORDERLINE PERSONALITY DISORDER
     Dosage: 1 MG, QD
     Dates: start: 20140905, end: 20140906
  3. RISPERDAL CONSTA [Suspect]
     Active Substance: RISPERIDONE
     Indication: BORDERLINE PERSONALITY DISORDER
     Dosage: 37.5 MG, EVERY 2 WEEKS, 2 PER MONTH
     Route: 030
  4. SYMBICORT [Concomitant]
     Active Substance: BUDESONIDE\FORMOTEROL FUMARATE DIHYDRATE
     Dosage: UNK
     Route: 055
  5. RISPERDAL [Suspect]
     Active Substance: RISPERIDONE
     Dosage: 2 MG, QD
     Dates: start: 20140907, end: 20140909
  6. RISPERDAL [Suspect]
     Active Substance: RISPERIDONE
     Dosage: 4 MG, QD
     Dates: start: 20140910, end: 20140919
  7. REMERON [Suspect]
     Active Substance: MIRTAZAPINE
     Dosage: 15 MG, QD
     Dates: start: 20140910, end: 20140923

REACTIONS (4)
  - Hyperprolactinaemia [Recovered/Resolved]
  - Breast tenderness [Recovered/Resolved]
  - Breast pain [Recovered/Resolved]
  - Galactorrhoea [Recovered/Resolved]

NARRATIVE: CASE EVENT DATE: 2014
